FAERS Safety Report 7220757-4 (Version None)
Quarter: 2011Q1

REPORT INFORMATION
  Report Type: 
  Country: None (occurrence: None)
  Receive Date: 20110111
  Receipt Date: 20101230
  Transmission Date: 20110831
  Serious: Yes (Other)
  Sender: FDA-Public Use
  Company Number: US-PFIZER INC-2010182299

PATIENT
  Sex: Female
  Weight: 113 kg

DRUGS (7)
  1. CALCIUM [Concomitant]
     Dosage: 600 MG, 1X/DAY
  2. FISH OIL [Concomitant]
     Dosage: UNK
     Route: 048
  3. XALATAN [Suspect]
     Indication: INTRAOCULAR PRESSURE INCREASED
     Dosage: UNK
     Route: 047
  4. OSTEO BI-FLEX [Concomitant]
     Dosage: UNK
  5. CENTRUM SILVER [Concomitant]
     Dosage: UNK
     Route: 048
  6. SYNTHROID [Concomitant]
     Indication: HYPOTHYROIDISM
     Dosage: UNK
     Route: 048
  7. COZAAR [Concomitant]
     Indication: HYPERTENSION
     Dosage: 50 MG, 1X/DAY
     Route: 048

REACTIONS (1)
  - INTRAOCULAR PRESSURE INCREASED [None]
